FAERS Safety Report 13627924 (Version 2)
Quarter: 2017Q2

REPORT INFORMATION
  Report Type: Report from Study
  Country: US (occurrence: US)
  Receive Date: 20170607
  Receipt Date: 20170620
  Transmission Date: 20170830
  Serious: No
  Sender: FDA-Public Use
  Company Number: PHEH2017US017252

PATIENT
  Sex: Female
  Weight: 49 kg

DRUGS (1)
  1. ILARIS [Suspect]
     Active Substance: CANAKINUMAB
     Indication: STILL^S DISEASE
     Dosage: 180 MG, UNK
     Route: 058

REACTIONS (3)
  - Spinal pain [Unknown]
  - Pain in extremity [Unknown]
  - Arthralgia [Recovering/Resolving]
